FAERS Safety Report 7678028-8 (Version None)
Quarter: 2011Q3

REPORT INFORMATION
  Report Type: 
  Country: None (occurrence: None)
  Receive Date: 20110811
  Receipt Date: 20110802
  Transmission Date: 20111222
  Serious: Yes (Life-Threatening, Hospitalization)
  Sender: FDA-Public Use
  Company Number: FR-GLAXOSMITHKLINE-B0734422A

PATIENT
  Age: 78 Year
  Sex: Male
  Weight: 80 kg

DRUGS (7)
  1. FEROGRAD [Concomitant]
     Route: 065
  2. PREVISCAN [Concomitant]
     Indication: ATRIAL FIBRILLATION
     Route: 065
     Dates: end: 20110204
  3. ZOLPIDEM [Concomitant]
     Route: 065
  4. FLECAINIDE ACETATE [Concomitant]
     Route: 065
  5. LASIX [Concomitant]
     Route: 065
  6. PERINDOPRIL ERBUMINE [Concomitant]
     Route: 065
  7. ARIXTRA [Suspect]
     Indication: ATRIAL FIBRILLATION
     Route: 065
     Dates: start: 20110204, end: 20110210

REACTIONS (3)
  - OFF LABEL USE [None]
  - ABDOMINAL PAIN LOWER [None]
  - MUSCLE HAEMORRHAGE [None]
